FAERS Safety Report 8308569-1 (Version None)
Quarter: 2012Q2

REPORT INFORMATION
  Report Type: 
  Country: None (occurrence: None)
  Receive Date: 20120424
  Receipt Date: 20120411
  Transmission Date: 20120825
  Serious: Yes (Hospitalization, Other)
  Sender: FDA-Public Use
  Company Number: CA-ELI_LILLY_AND_COMPANY-CA201204003527

PATIENT
  Age: 16 Year
  Sex: Male

DRUGS (3)
  1. CONCERTA [Concomitant]
  2. ROCALTROL [Concomitant]
     Dosage: 0.5 UG, BID
     Route: 048
  3. STRATTERA [Suspect]
     Dosage: UNK, UNKNOWN
     Route: 048

REACTIONS (7)
  - VOMITING [None]
  - PALLOR [None]
  - HEADACHE [None]
  - BLOOD CALCIUM DECREASED [None]
  - BLOOD PARATHYROID HORMONE DECREASED [None]
  - BLOOD PRESSURE INCREASED [None]
  - NAUSEA [None]
